FAERS Safety Report 7226828-0 (Version None)
Quarter: 2011Q1

REPORT INFORMATION
  Report Type: 
  Country: None (occurrence: None)
  Receive Date: 20110111
  Receipt Date: 20110111
  Transmission Date: 20110831
  Serious: Yes (Hospitalization)
  Sender: FDA-Public Use
  Company Number: None

PATIENT
  Age: 50 Year
  Sex: Male
  Weight: 79 kg

DRUGS (2)
  1. LOSARTAN POTASSIUM [Suspect]
     Indication: HYPERKALAEMIA
     Dosage: 100 MG EVERY DAY PO
     Route: 048
     Dates: start: 20081114, end: 20101014
  2. LOSARTAN POTASSIUM [Suspect]
     Indication: CONVULSION
     Dosage: 100 MG EVERY DAY PO
     Route: 048
     Dates: start: 20081114, end: 20101014

REACTIONS (2)
  - GRAND MAL CONVULSION [None]
  - HYPERKALAEMIA [None]
